FAERS Safety Report 5628616-5 (Version None)
Quarter: 2008Q1

REPORT INFORMATION
  Report Type: 
  Country: None (occurrence: None)
  Receive Date: 20080215
  Receipt Date: 20080212
  Transmission Date: 20080703
  Serious: Yes (Other)
  Sender: FDA-Public Use
  Company Number: CA-MERCK-0802CAN00046

PATIENT
  Age: 60 Year
  Sex: Female
  Weight: 57 kg

DRUGS (4)
  1. COZAAR [Suspect]
     Route: 048
  2. LEVOTHYROXINE SODIUM [Concomitant]
     Route: 048
  3. ALENDRONATE SODIUM [Concomitant]
     Route: 048
  4. VITAMIN D (UNSPECIFIED) [Concomitant]
     Route: 048

REACTIONS (3)
  - MUSCLE SPASTICITY [None]
  - PAIN [None]
  - RESTLESS LEGS SYNDROME [None]
